FAERS Safety Report 12886409 (Version 1)
Quarter: 2016Q4

REPORT INFORMATION
  Report Type: Spontaneous
  Country: US (occurrence: US)
  Receive Date: 20161026
  Receipt Date: 20161026
  Transmission Date: 20170207
  Serious: No
  Sender: FDA-Public Use
  Company Number: US-ENDO PHARMACEUTICALS INC.-2015-003840

PATIENT
  Age: 72 Year
  Sex: Male
  Weight: 99.88 kg

DRUGS (11)
  1. TRAVATAN [Concomitant]
     Active Substance: TRAVOPROST
     Indication: GLAUCOMA
  2. VALSTAR [Suspect]
     Active Substance: VALRUBICIN
     Indication: BLADDER CANCER
     Route: 065
     Dates: start: 20151103, end: 20151117
  3. ALLOPURINOL TABLETS 300MG [Concomitant]
     Active Substance: ALLOPURINOL
     Indication: GOUT
  4. LISINOPRIL. [Concomitant]
     Active Substance: LISINOPRIL
     Indication: HYPERTENSION
  5. VALSTAR [Suspect]
     Active Substance: VALRUBICIN
     Indication: CARCINOMA IN SITU
  6. FUROSEMIDE TABLETS 20MG [Concomitant]
     Active Substance: FUROSEMIDE
     Indication: FLUID RETENTION
  7. BAYER ASPIRIN [Concomitant]
     Active Substance: ASPIRIN
     Indication: PRODUCT USED FOR UNKNOWN INDICATION
  8. COLCRYS [Concomitant]
     Active Substance: COLCHICINE
     Indication: GOUT
  9. COMBIGAN [Concomitant]
     Active Substance: BRIMONIDINE TARTRATE\TIMOLOL MALEATE
     Indication: GLAUCOMA
  10. LOVASTATIN. [Concomitant]
     Active Substance: LOVASTATIN
     Indication: BLOOD CHOLESTEROL INCREASED
  11. ATENOLOL. [Concomitant]
     Active Substance: ATENOLOL
     Indication: HYPERTENSION

REACTIONS (5)
  - Hyperhidrosis [Not Recovered/Not Resolved]
  - Urinary incontinence [Recovered/Resolved]
  - Urge incontinence [Recovered/Resolved]
  - Underdose [Recovered/Resolved]
  - Bladder instillation procedure [Recovered/Resolved]

NARRATIVE: CASE EVENT DATE: 20151103
